FAERS Safety Report 13881652 (Version 1)
Quarter: 2017Q3

REPORT INFORMATION
  Report Type: Spontaneous
  Country: BE (occurrence: BE)
  Receive Date: 20170818
  Receipt Date: 20170818
  Transmission Date: 20171127
  Serious: Yes (Other)
  Sender: FDA-Public Use
  Company Number: BE-SEPTODONT-201704204

PATIENT
  Age: 9 Year
  Sex: Female
  Weight: 44 kg

DRUGS (2)
  1. XOGEL [Concomitant]
     Indication: LOCAL ANAESTHESIA
     Route: 004
     Dates: start: 20170731
  2. LIGNOSPAN 20 MG/ML + 0,0125 MG/ML [Suspect]
     Active Substance: EPINEPHRINE BITARTRATE\LIDOCAINE HYDROCHLORIDE
     Indication: LOCAL ANAESTHESIA
     Dosage: PERIAPICAL INJECTION ON HEALTHY SITE WITH SEPTOJECT XL 30G/0.30MM
     Route: 004
     Dates: start: 20170731

REACTIONS (6)
  - Lip swelling [Recovered/Resolved]
  - Hypoaesthesia [Recovered/Resolved]
  - Pain [Recovered/Resolved]
  - Lip disorder [Recovered/Resolved]
  - Swelling face [Unknown]
  - Paralysis [Recovered/Resolved]

NARRATIVE: CASE EVENT DATE: 20170731
